FAERS Safety Report 10174311 (Version 1)
Quarter: 2014Q2

REPORT INFORMATION
  Report Type: Spontaneous
  Country: FR (occurrence: FR)
  Receive Date: 20140515
  Receipt Date: 20140515
  Transmission Date: 20141212
  Serious: Yes (Hospitalization)
  Sender: FDA-Public Use
  Company Number: FR-009507513-1405FRA003762

PATIENT
  Age: 88 Year
  Sex: Male

DRUGS (4)
  1. FORTZAAR 100 MG/25 MG, COMPRIM? PELLICUL? [Suspect]
     Dosage: 1 DF, QD
     Route: 048
     Dates: start: 20131212, end: 20140128
  2. LOXEN [Suspect]
     Dosage: 1 DF, BID
     Route: 048
     Dates: start: 20131204, end: 20140128
  3. HYPERIUM [Suspect]
     Dosage: UNK
     Route: 048
     Dates: start: 20131004, end: 20140128
  4. AMOXICILLIN [Suspect]

REACTIONS (5)
  - Hepatocellular injury [Recovered/Resolved]
  - Eosinophilia [Recovered/Resolved]
  - Pyrexia [Recovered/Resolved]
  - Rash maculo-papular [Recovered/Resolved]
  - Face oedema [Recovered/Resolved]
